FAERS Safety Report 6300022-X (Version None)
Quarter: 2009Q3

REPORT INFORMATION
  Report Type: 
  Country: None (occurrence: None)
  Receive Date: 20090806
  Receipt Date: 20090727
  Transmission Date: 20100115
  Serious: Yes (Hospitalization)
  Sender: FDA-Public Use
  Company Number: BE-ABBOTT-09P-013-0500490-01

PATIENT
  Sex: Male

DRUGS (13)
  1. HUMIRA [Suspect]
     Indication: RHEUMATOID ARTHRITIS
     Route: 058
     Dates: start: 20070912, end: 20090114
  2. METHOTREXATE [Suspect]
     Indication: RHEUMATOID ARTHRITIS
     Route: 048
     Dates: start: 20070912, end: 20090121
  3. FOLIC ACID [Concomitant]
     Indication: VITAMIN SUPPLEMENTATION
     Dates: start: 20070912
  4. ASAFLOW [Concomitant]
     Indication: CORONARY ARTERY DISEASE
     Dates: start: 20060101
  5. CRESTOR [Concomitant]
     Indication: HYPERLIPIDAEMIA
     Dates: start: 20040101
  6. CORUNO [Concomitant]
     Indication: PROPHYLAXIS
     Dates: start: 20050701
  7. CORUNO [Concomitant]
     Indication: ANGINA PECTORIS
  8. EMCORETIC [Concomitant]
     Indication: HYPERTENSION
     Dates: start: 20040201
  9. MINIBOL [Concomitant]
     Indication: PAIN
     Dates: start: 20070822, end: 20071227
  10. MINIBOL [Concomitant]
     Indication: RHEUMATOID ARTHRITIS
  11. DUOVENT [Concomitant]
     Indication: DYSPNOEA
     Dosage: 50/20MG
     Dates: start: 20090101
  12. DUOVENT [Concomitant]
     Dates: start: 20090214, end: 20090216
  13. DUOVENT [Concomitant]

REACTIONS (1)
  - EMPHYSEMA [None]
